FAERS Safety Report 14604886 (Version 2)
Quarter: 2018Q2

REPORT INFORMATION
  Report Type: Spontaneous
  Country: US (occurrence: US)
  Receive Date: 20180306
  Receipt Date: 20180507
  Transmission Date: 20180711
  Serious: No
  Sender: FDA-Public Use
  Company Number: US-PFIZER INC-2018085603

PATIENT
  Age: 37 Year
  Sex: Female

DRUGS (1)
  1. EUCRISA [Suspect]
     Active Substance: CRISABOROLE
     Dosage: UNK, 2X/DAY (APPLY TO AFFECTED AREA TWICE A DAY)
     Route: 061
     Dates: start: 201712

REACTIONS (4)
  - Drug ineffective [Unknown]
  - Application site urticaria [Unknown]
  - Application site erythema [Unknown]
  - Condition aggravated [Unknown]
